FAERS Safety Report 9334316 (Version 2)
Quarter: 2013Q4

REPORT INFORMATION
  Report Type: Spontaneous
  Country: US (occurrence: US)
  Receive Date: 20130606
  Receipt Date: 20131008
  Transmission Date: 20140711
  Serious: No
  Sender: FDA-Public Use
  Company Number: US-AMGEN-USASP2013033939

PATIENT
  Age: 55 Year
  Sex: Female

DRUGS (6)
  1. PROLIA [Suspect]
     Indication: OSTEOPOROSIS POSTMENOPAUSAL
     Dosage: UNK
     Dates: start: 201210
  2. SYNTHROID [Concomitant]
  3. ATENOLOL [Concomitant]
  4. LIPITOR [Concomitant]
  5. CALCIUM [Concomitant]
  6. VITAMIN D                          /00107901/ [Concomitant]
     Dosage: 1000 UNK, UNK

REACTIONS (2)
  - Paraesthesia [Unknown]
  - Blood calcium decreased [Unknown]
